FAERS Safety Report 11813932 (Version 2)
Quarter: 2016Q1

REPORT INFORMATION
  Report Type: Spontaneous
  Country: US (occurrence: US)
  Receive Date: 20151209
  Receipt Date: 20160105
  Transmission Date: 20160525
  Serious: No
  Sender: FDA-Public Use
  Company Number: US-MISSION PHARMACAL COMPANY-1045247

PATIENT
  Sex: Male

DRUGS (2)
  1. THIOLA [Suspect]
     Active Substance: TIOPRONIN
     Route: 065
     Dates: start: 20150908
  2. BENADRYL [Concomitant]
     Active Substance: DIPHENHYDRAMINE HYDROCHLORIDE
     Route: 065

REACTIONS (1)
  - Drug eruption [Unknown]
